FAERS Safety Report 7061107-6 (Version None)
Quarter: 2010Q4

REPORT INFORMATION
  Report Type: 
  Country: None (occurrence: None)
  Receive Date: 20101026
  Receipt Date: 20101018
  Transmission Date: 20110411
  Serious: Yes (Other)
  Sender: FDA-Public Use
  Company Number: US-PFIZER INC-2010104019

PATIENT
  Sex: Male

DRUGS (1)
  1. SUTENT [Suspect]
     Indication: RENAL CELL CARCINOMA
     Dosage: 50 MG, 1X/DAY, 4 WEEKS ON AND 2 WEEK OFF
     Dates: start: 20100729

REACTIONS (6)
  - GASTROINTESTINAL HAEMORRHAGE [None]
  - PALMAR-PLANTAR ERYTHRODYSAESTHESIA SYNDROME [None]
  - PHARYNGEAL OEDEMA [None]
  - RECTAL HAEMORRHAGE [None]
  - SWELLING FACE [None]
  - SWOLLEN TONGUE [None]
